FAERS Safety Report 6419915-8 (Version None)
Quarter: 2009Q4

REPORT INFORMATION
  Report Type: 
  Country: None (occurrence: None)
  Receive Date: 20091014
  Receipt Date: 20090821
  Transmission Date: 20100525
  Serious: Yes (Other)
  Sender: FDA-Public Use
  Company Number: 2009RR-26920

PATIENT
  Age: 75 Year

DRUGS (3)
  1. ENALAPRIL MALEATE [Suspect]
     Indication: CARDIAC FAILURE
     Dosage: 20 MG, QD
  2. TORSEMIDE [Suspect]
     Indication: CARDIAC FAILURE
     Dosage: 20 MG, QD
  3. LITHIUM CARBONATE [Suspect]
     Indication: BIPOLAR DISORDER
     Dosage: 660 MG, QD

REACTIONS (2)
  - RENAL FAILURE [None]
  - THERAPEUTIC AGENT TOXICITY [None]
